FAERS Safety Report 4866846-0 (Version None)
Quarter: 2005Q4

REPORT INFORMATION
  Report Type: 
  Country: None (occurrence: None)
  Receive Date: 20051222
  Receipt Date: 20051209
  Transmission Date: 20060501
  Serious: Yes (Hospitalization)
  Sender: FDA-Public Use
  Company Number: GXKR2005TR02106

PATIENT
  Age: 50 Year
  Sex: Male

DRUGS (3)
  1. RIFAMPICIN [Suspect]
     Indication: BRUCELLOSIS
  2. TETRACYCLINE [Concomitant]
  3. STREPTOMYCIN [Concomitant]

REACTIONS (12)
  - DYSPNOEA [None]
  - HAEMODIALYSIS [None]
  - HAEMOLYTIC ANAEMIA [None]
  - HYPERTHYROIDISM [None]
  - NEPHROPATHY TOXIC [None]
  - OEDEMA [None]
  - OEDEMATOUS PANCREATITIS [None]
  - PANCREATITIS [None]
  - RALES [None]
  - RENAL FAILURE ACUTE [None]
  - THYROID NEOPLASM [None]
  - TUBULOINTERSTITIAL NEPHRITIS [None]
